FAERS Safety Report 8392098-3 (Version None)
Quarter: 2012Q2

REPORT INFORMATION
  Report Type: 
  Country: None (occurrence: None)
  Receive Date: 20120529
  Receipt Date: 20120523
  Transmission Date: 20120825
  Serious: No
  Sender: FDA-Public Use
  Company Number: US-BAYER-2012-052005

PATIENT
  Age: 35 Year
  Sex: Female

DRUGS (3)
  1. AVELOX [Suspect]
     Indication: EXPOSURE TO COMMUNICABLE DISEASE
     Dosage: 400 MG, QD
     Route: 048
     Dates: start: 20120401
  2. XYZAL [Concomitant]
  3. PREVACID [Concomitant]

REACTIONS (1)
  - DRUG SCREEN POSITIVE [None]
